FAERS Safety Report 6903230-X (Version None)
Quarter: 2010Q3

REPORT INFORMATION
  Report Type: 
  Country: None (occurrence: None)
  Receive Date: 20100803
  Receipt Date: 20080702
  Transmission Date: 20110219
  Serious: No
  Sender: FDA-Public Use
  Company Number: US-PFIZER INC-2008057167

PATIENT
  Sex: Male
  Weight: 109.1 kg

DRUGS (4)
  1. LYRICA [Suspect]
     Indication: NEURALGIA
     Dates: start: 20070101
  2. LYRICA [Suspect]
     Indication: SCIATICA
  3. OXYCODONE [Concomitant]
  4. CYMBALTA [Concomitant]

REACTIONS (2)
  - NEURALGIA [None]
  - WEIGHT INCREASED [None]
